FAERS Safety Report 9788860 (Version 1)
Quarter: 2013Q4

REPORT INFORMATION
  Report Type: Spontaneous
  Country: US (occurrence: US)
  Receive Date: 20131230
  Receipt Date: 20131230
  Transmission Date: 20140711
  Serious: No
  Sender: FDA-Public Use
  Company Number: US-B.I. PHARMACEUTICALS,INC./RIDGEFIELD-2013-BI-42770BP

PATIENT
  Age: 72 Year
  Sex: Male
  Weight: 72 kg

DRUGS (7)
  1. SPIRIVA [Suspect]
     Dosage: 18 MCG
     Route: 055
     Dates: start: 201309
  2. LIPITOR [Concomitant]
     Indication: BLOOD CHOLESTEROL INCREASED
     Dosage: 20 MG
     Route: 048
  3. RAMIPRIL [Concomitant]
     Indication: HYPERTENSION
     Dosage: 20 MG
     Route: 048
  4. SYNTHROID [Concomitant]
     Indication: HYPOTHYROIDISM
     Dosage: 137 MCG
     Route: 048
  5. PENTOXIFYLLINE [Concomitant]
     Indication: NEUROPATHY PERIPHERAL
     Dosage: 800 MG
     Route: 048
  6. ASPIRIN [Concomitant]
     Dosage: 650 MG
     Route: 048
  7. MULTIVITAMIN [Concomitant]
     Route: 048

REACTIONS (1)
  - Dyspnoea [Not Recovered/Not Resolved]
